FAERS Safety Report 22362504 (Version 1)
Quarter: 2023Q2

REPORT INFORMATION
  Report Type: Spontaneous
  Country: AU (occurrence: AU)
  Receive Date: 20230524
  Receipt Date: 20230524
  Transmission Date: 20230721
  Serious: Yes (Death, Life-Threatening, Hospitalization, Other)
  Sender: FDA-Public Use
  Company Number: MY-MLMSERVICE-20230417-4228309-1

PATIENT
  Age: 51 Year
  Sex: Male
  Weight: 67.5 kg

DRUGS (11)
  1. DEXAMETHASONE [Suspect]
     Active Substance: DEXAMETHASONE
     Indication: Haemophagocytic lymphohistiocytosis
     Dosage: D1,4,8,11,14 DEXAMETHASONE (10MG/ M2) -20MG DAILY
     Route: 065
     Dates: start: 20190520, end: 20190611
  2. METHYLPREDNISOLONE [Suspect]
     Active Substance: METHYLPREDNISOLONE
     Indication: Aplastic anaemia
     Dosage: D1-4 METHYLPRED (1MG/KG) IN N/SALINE 100ML FOR IV INFUSION OVER 30 MINUTES) -70MG ONCE- CYCLE 1 OF 1
     Route: 042
     Dates: start: 20190510, end: 20190514
  3. CYCLOSPORINE [Suspect]
     Active Substance: CYCLOSPORINE
     Indication: Aplastic anaemia
     Dosage: D1 CYCLOSPORIN (3MG/KG) 200MG BD- CYCLE 1 OF 1
     Route: 065
     Dates: start: 20190510, end: 201905
  4. ETOPOSIDE [Suspect]
     Active Substance: ETOPOSIDE
     Indication: Haemophagocytic lymphohistiocytosis
     Dosage: D1,4,8,11,14(D1-20 MAY2019)ETOPOSIDE(150 MG/M^2) IN N/SALINE 1L FOR IV INFU OVER 60 MIN-271.5MG ONCE
     Route: 042
     Dates: start: 20190520, end: 20190611
  5. EQUINE THYMOCYTE IMMUNE GLOBULIN [Suspect]
     Active Substance: EQUINE THYMOCYTE IMMUNE GLOBULIN
     Indication: Aplastic anaemia
     Dosage: D1-4  ANTITHYMOCYTE G (40MG/KG) IN N/SALINE 1L FOR IV INFUSION OVER 4-6 HOURS -2720MG-CYCLE 1 OF 1
     Route: 042
     Dates: start: 20190510, end: 20190514
  6. AZATHIOPRINE [Concomitant]
     Active Substance: AZATHIOPRINE
     Indication: Colitis ulcerative
  7. ALLOPURINOL [Concomitant]
     Active Substance: ALLOPURINOL
     Indication: Colitis ulcerative
  8. SODIUM CHLORIDE [Concomitant]
     Active Substance: SODIUM CHLORIDE
     Indication: Product used for unknown indication
     Dosage: D1,4,8,11,14, ETOPOSIDE(150 MG/M2) IN N/SALINE 1L FOR IV INFU OVER 60 MIN-271.5MG ONCE
     Route: 042
     Dates: start: 20190520, end: 20190611
  9. SODIUM CHLORIDE [Concomitant]
     Active Substance: SODIUM CHLORIDE
     Dosage: METHYLPRED.(1MG/KG) IN N/SALINE 100ML FOR IV INFUSION OVER 30 MIN)- 70MG ONCE
     Route: 042
     Dates: start: 20190510, end: 20190514
  10. SODIUM CHLORIDE [Concomitant]
     Active Substance: SODIUM CHLORIDE
     Dosage: D1-4  ANTITHYMOCYTE GLOBULIN (EQUINE) (40MG/KG) IN N/SALINE 1L FOR  IV INFUSION OVER 4-6 HOURS
     Route: 042
     Dates: start: 20190510, end: 20190514
  11. MESALAMINE [Concomitant]
     Active Substance: MESALAMINE
     Indication: Colitis ulcerative

REACTIONS (4)
  - Systemic candida [Fatal]
  - Pseudomonal bacteraemia [Fatal]
  - Pseudomonal sepsis [Fatal]
  - Fournier^s gangrene [Fatal]

NARRATIVE: CASE EVENT DATE: 20190501
